FAERS Safety Report 6876924-2 (Version None)
Quarter: 2010Q3

REPORT INFORMATION
  Report Type: 
  Country: None (occurrence: None)
  Receive Date: 20100727
  Receipt Date: 20100713
  Transmission Date: 20110219
  Serious: Yes (Other)
  Sender: FDA-Public Use
  Company Number: US-ELI_LILLY_AND_COMPANY-US201005006120

PATIENT
  Age: 77 Year
  Sex: Female

DRUGS (4)
  1. FORTEO [Suspect]
     Indication: OSTEOPOROSIS
     Dosage: 20 UG, DAILY (1/D)
     Dates: end: 20040101
  2. ZOLOFT [Concomitant]
     Dosage: 25 MG, UNKNOWN
     Route: 065
  3. CLARINEX [Concomitant]
  4. ARIMIDEX [Concomitant]

REACTIONS (1)
  - BREAST CANCER [None]
